FAERS Safety Report 4719985-9 (Version None)
Quarter: 2005Q3

REPORT INFORMATION
  Report Type: 
  Country: None (occurrence: None)
  Receive Date: 20050721
  Receipt Date: 20040309
  Transmission Date: 20060218
  Serious: No
  Sender: FDA-Public Use
  Company Number: US-GLAXOSMITHKLINE-A0501946A

PATIENT
  Age: 49 Year
  Sex: Female

DRUGS (4)
  1. IMITREX [Suspect]
     Indication: MIGRAINE
     Dosage: 100MG AS REQUIRED
     Route: 048
     Dates: start: 19950101
  2. NADOLOL [Concomitant]
  3. ELAVIL [Concomitant]
  4. PERCOCET [Concomitant]

REACTIONS (1)
  - HEADACHE [None]
